FAERS Safety Report 6872047-7 (Version None)
Quarter: 2010Q3

REPORT INFORMATION
  Report Type: 
  Country: None (occurrence: None)
  Receive Date: 20100723
  Receipt Date: 20100716
  Transmission Date: 20110219
  Serious: Yes (Hospitalization)
  Sender: FDA-Public Use
  Company Number: US-GILEAD-2010-0030472

PATIENT
  Sex: Female
  Weight: 71.823 kg

DRUGS (5)
  1. ATRIPLA [Suspect]
     Indication: HIV INFECTION
     Route: 048
     Dates: start: 20100602, end: 20100715
  2. VALACYCLOVIR [Concomitant]
     Indication: HERPES SIMPLEX
     Dates: start: 20100623
  3. HYDROCHLOROTHIAZIDE [Concomitant]
     Indication: HYPERTENSION
     Dates: start: 20100701
  4. METOPROLOL SUCCINATE [Concomitant]
     Indication: HYPERTENSION
     Dates: start: 20100701, end: 20100712
  5. NORVASC [Concomitant]
     Indication: HYPERTENSION
     Dates: start: 20100712

REACTIONS (3)
  - DYSPNOEA [None]
  - DYSPNOEA EXERTIONAL [None]
  - SYNCOPE [None]
